FAERS Safety Report 7090841-7 (Version None)
Quarter: 2010Q4

REPORT INFORMATION
  Report Type: 
  Country: None (occurrence: None)
  Receive Date: 20101109
  Receipt Date: 20101102
  Transmission Date: 20110411
  Serious: Yes (Hospitalization, Other)
  Sender: FDA-Public Use
  Company Number: FR-PURDUE-GBR-2010-0007295

PATIENT
  Age: 54 Year
  Sex: Female

DRUGS (4)
  1. OXYCONTIN [Suspect]
     Indication: PRODUCT USED FOR UNKNOWN INDICATION
     Dosage: 13 DF, UNK
     Route: 048
  2. SKENAN [Suspect]
     Dosage: 3 DF, UNK
     Route: 048
  3. RIVOTRIL [Suspect]
     Route: 048
  4. OMEPRAZOLE [Suspect]
     Route: 048

REACTIONS (3)
  - COMA [None]
  - INTENTIONAL DRUG MISUSE [None]
  - STRESS CARDIOMYOPATHY [None]
